FAERS Safety Report 21076187 (Version 1)
Quarter: 2022Q3

REPORT INFORMATION
  Report Type: Spontaneous
  Country: US (occurrence: None)
  Receive Date: 20220713
  Receipt Date: 20220713
  Transmission Date: 20221027
  Serious: No
  Sender: FDA-Public Use
  Company Number: None

PATIENT
  Age: 80 Year
  Sex: Male
  Weight: 102.83 kg

DRUGS (7)
  1. CAPECITABINE [Suspect]
     Active Substance: CAPECITABINE
     Indication: Rectal cancer
     Dosage: FREQUENCY : TWICE A DAY;?
     Route: 048
     Dates: start: 20220610
  2. ATORVASTATIN [Concomitant]
     Active Substance: ATORVASTATIN
  3. FENOFIBRATE [Concomitant]
     Active Substance: FENOFIBRATE
  4. GLIPIZIDE [Concomitant]
     Active Substance: GLIPIZIDE
  5. LABETALOL [Concomitant]
     Active Substance: LABETALOL\LABETALOL HYDROCHLORIDE
  6. LEVOTHYROXINE [Concomitant]
     Active Substance: LEVOTHYROXINE
  7. PIOGLITAZONE [Concomitant]
     Active Substance: PIOGLITAZONE

REACTIONS (2)
  - Diarrhoea [None]
  - Dehydration [None]
